FAERS Safety Report 9817741 (Version 1)
Quarter: 2014Q1

REPORT INFORMATION
  Report Type: Spontaneous
  Country: US (occurrence: None)
  Receive Date: 20140110
  Receipt Date: 20140110
  Transmission Date: 20141002
  Serious: Yes (Hospitalization)
  Sender: FDA-Public Use
  Company Number: None

PATIENT
  Age: 82 Year
  Sex: Male
  Weight: 83 kg

DRUGS (7)
  1. SUNITINIB MALATE [Suspect]
     Dates: end: 20131211
  2. ASPIRIN [Concomitant]
  3. FISH OIL [Concomitant]
  4. MULTIVITAMIN [Concomitant]
  5. PERCOCET [Concomitant]
  6. GLUCOSAMINE CHONDROITIN [Concomitant]
  7. MAX-OXIDE [Concomitant]

REACTIONS (7)
  - Electrocardiogram QT prolonged [None]
  - Dyspnoea exertional [None]
  - Oedema peripheral [None]
  - Haemoglobin decreased [None]
  - White blood cell count decreased [None]
  - Blood creatinine increased [None]
  - Blood magnesium decreased [None]
